FAERS Safety Report 6167134-5 (Version None)
Quarter: 2009Q2

REPORT INFORMATION
  Report Type: 
  Country: None (occurrence: None)
  Receive Date: 20090424
  Receipt Date: 20090413
  Transmission Date: 20091009
  Serious: Yes (Other)
  Sender: FDA-Public Use
  Company Number: US-KINGPHARMUSA00001-K200900435

PATIENT
  Sex: Female
  Weight: 63.492 kg

DRUGS (9)
  1. LEVOXYL [Suspect]
     Indication: AUTOIMMUNE THYROIDITIS
     Dosage: ^2/3 OF 50 MCG,^ QD
     Route: 048
  2. LEVOXYL [Suspect]
     Dosage: 100 MCG, QD
     Route: 048
     Dates: start: 19970101
  3. LEVOXYL [Suspect]
     Dosage: 75 MCG, QD
     Route: 048
  4. LEVOXYL [Suspect]
     Dosage: 88 MCG, QD
     Route: 048
  5. ALLEGRA [Concomitant]
     Indication: BURNING SENSATION
     Dosage: UNK
     Route: 048
  6. ACIPHEX [Concomitant]
     Dosage: UNK
     Route: 048
  7. ZOCOR [Concomitant]
     Indication: BLOOD CHOLESTEROL INCREASED
     Dosage: UNK
     Route: 048
  8. TRICOR [Concomitant]
     Indication: BLOOD TRIGLYCERIDES INCREASED
     Dosage: UNK
     Route: 048
  9. CYTOMEL [Concomitant]
     Dosage: UNK
     Route: 048

REACTIONS (15)
  - BLOOD THYROID STIMULATING HORMONE ABNORMAL [None]
  - BURNING SENSATION [None]
  - CONFUSIONAL STATE [None]
  - DIZZINESS [None]
  - DYSPHAGIA [None]
  - EYELID DISORDER [None]
  - FACIAL PALSY [None]
  - GAIT DISTURBANCE [None]
  - GINGIVAL DISORDER [None]
  - LOSS OF CONSCIOUSNESS [None]
  - NAUSEA [None]
  - SALIVARY HYPERSECRETION [None]
  - TRANSIENT ISCHAEMIC ATTACK [None]
  - TREMOR [None]
  - VERTIGO [None]
